FAERS Safety Report 8249452-X (Version None)
Quarter: 2012Q1

REPORT INFORMATION
  Report Type: 
  Country: None (occurrence: None)
  Receive Date: 20120316
  Receipt Date: 20100427
  Transmission Date: 20120608
  Serious: Yes (Other)
  Sender: FDA-Public Use
  Company Number: PHHY2010US27212

PATIENT
  Sex: Male

DRUGS (3)
  1. TEKTURNA [Suspect]
     Dosage: 150 MG
  2. AMLODIPINE [Concomitant]
  3. VYTORIN [Concomitant]

REACTIONS (3)
  - HEART RATE INCREASED [None]
  - DIZZINESS [None]
  - BLOOD PRESSURE DECREASED [None]
